FAERS Safety Report 24387616 (Version 2)
Quarter: 2024Q4

REPORT INFORMATION
  Report Type: Report from Study
  Country: US (occurrence: US)
  Receive Date: 20241002
  Receipt Date: 20241024
  Transmission Date: 20250115
  Serious: Yes (Hospitalization)
  Sender: ROCHE
  Company Number: US-ROCHE-10000089229

PATIENT
  Age: 42 Year
  Sex: Female
  Weight: 96.16 kg

DRUGS (16)
  1. OCREVUS [Suspect]
     Active Substance: OCRELIZUMAB
     Indication: Multiple sclerosis
     Dosage: 300 MG ON DAY 0, 14, THEN 600 MG EVERY 6 MONTHS
     Route: 042
     Dates: start: 20240304, end: 20240319
  2. XANAX [Concomitant]
     Active Substance: ALPRAZOLAM
     Route: 048
  3. AZELASTINE [Concomitant]
     Active Substance: AZELASTINE
     Dosage: 0.1 % NASAL SPRAY
     Route: 045
  4. ESOMEPRAZOLE [Concomitant]
     Active Substance: ESOMEPRAZOLE
     Route: 048
  5. FLUTICASONE [Concomitant]
     Active Substance: FLUTICASONE
     Dosage: 50 MCG/ACT NASAL SPRAY
     Route: 045
  6. ACETAMINOPHEN\HYDROCODONE [Concomitant]
     Active Substance: ACETAMINOPHEN\HYDROCODONE
     Dosage: 10-325 MG
     Route: 048
  7. JARDIANCE [Concomitant]
     Active Substance: EMPAGLIFLOZIN
     Route: 048
  8. LOVASTATIN [Concomitant]
     Active Substance: LOVASTATIN
     Route: 048
  9. MELATONIN [Concomitant]
     Active Substance: MELATONIN
     Route: 048
  10. MOUNJARO [Concomitant]
     Active Substance: TIRZEPATIDE
     Dosage: 5 MG/0.5 ML
     Route: 058
  11. ONDANSETRON [Concomitant]
     Active Substance: ONDANSETRON
     Route: 048
  12. SAVELLA [Concomitant]
     Active Substance: MILNACIPRAN HYDROCHLORIDE
     Route: 048
  13. TIZANIDINE [Concomitant]
     Active Substance: TIZANIDINE
     Route: 048
  14. ERGOCALCIFEROL [Concomitant]
     Active Substance: ERGOCALCIFEROL
     Route: 048
  15. SOLU-MEDROL [Concomitant]
     Active Substance: METHYLPREDNISOLONE SODIUM SUCCINATE
     Route: 042
  16. FAMOTIDINE [Concomitant]
     Active Substance: FAMOTIDINE
     Route: 048

REACTIONS (3)
  - Drug hypersensitivity [Unknown]
  - Pruritus [Recovered/Resolved]
  - Throat irritation [Recovered/Resolved]

NARRATIVE: CASE EVENT DATE: 20240304
